FAERS Safety Report 9783287 (Version 1)
Quarter: 2013Q4

REPORT INFORMATION
  Report Type: Spontaneous
  Country: US (occurrence: None)
  Receive Date: 20131223
  Receipt Date: 20131223
  Transmission Date: 20140711
  Serious: Yes (Life-Threatening)
  Sender: FDA-Public Use
  Company Number: EUS-2012-00107

PATIENT
  Age: 7 Year
  Sex: Female
  Weight: 29.8 kg

DRUGS (7)
  1. ERWINAZE [Suspect]
     Indication: ACUTE LYMPHOCYTIC LEUKAEMIA
     Route: 042
     Dates: start: 20111202
  2. HD ARA-C (CYCTARABINE) (CYTARABINE) [Concomitant]
  3. DEXAMETHASONE-SODIUM PHOSPHATE (DEXAMETAHSONE SODIUM) [Concomitant]
  4. TRIMETHOPRIM SULFAMETHOXAZOLE (SULFAMETHOXAZOLE) (SULFAMETHOXAZOLE) [Concomitant]
  5. VORICONAZOLE (VORICONAZOLE) (VORICONAZOLE) [Concomitant]
  6. ONDANSETRON HCL (ONDANSETRON HYDROCHLORIDE) (ONDANSETRON HYROCHLORIDE) [Concomitant]
  7. CEFEPIME (CEFEPIME) (CEFEPIME) [Concomitant]

REACTIONS (7)
  - Agitation [None]
  - Dysphagia [None]
  - Wheezing [None]
  - Vomiting [None]
  - Nausea [None]
  - Urticaria [None]
  - Oxygen saturation decreased [None]
